FAERS Safety Report 12552550 (Version 4)
Quarter: 2016Q4

REPORT INFORMATION
  Report Type: Spontaneous
  Country: US (occurrence: US)
  Receive Date: 20160713
  Receipt Date: 20161104
  Transmission Date: 20170207
  Serious: Yes (Other)
  Sender: FDA-Public Use
  Company Number: US-PFIZER INC-2016276293

PATIENT
  Age: 84 Year
  Sex: Female
  Weight: 63 kg

DRUGS (17)
  1. FASLODEX [Concomitant]
     Active Substance: FULVESTRANT
     Indication: BREAST CANCER FEMALE
     Dosage: 500 MG, 1X/DAY
     Dates: start: 20121211
  2. METOPROLOL. [Concomitant]
     Active Substance: METOPROLOL
     Indication: CORONARY ARTERY DISEASE
     Dosage: 50 MG, 2X/DAY (MORN-EVE)
     Dates: start: 20111230
  3. BABY ASPIRIN [Concomitant]
     Active Substance: ASPIRIN
     Dosage: UNK, AS NEEDED
  4. HYDROCODONE [Concomitant]
     Active Substance: HYDROCODONE
     Indication: PAIN
     Dosage: 1300 MG, AS NEEDED  (4 AS NEEDED)
  5. CARAFATE [Concomitant]
     Active Substance: SUCRALFATE
     Indication: GASTROOESOPHAGEAL REFLUX DISEASE
     Dosage: 1 G, AS NEEDED (BEFORE MEALS)
  6. IBRANCE [Suspect]
     Active Substance: PALBOCICLIB
     Dosage: 100 MG, CYCLIC, (DAILY FOR 21 DAYS ON 7 DAYS OFF)
     Route: 048
     Dates: start: 20140531
  7. AMLODIPINE [Concomitant]
     Active Substance: AMLODIPINE BESYLATE
     Dosage: 5 MG, 1X/DAY (NOON)
  8. OMEPRAZOLE. [Concomitant]
     Active Substance: OMEPRAZOLE
     Indication: GASTROOESOPHAGEAL REFLUX DISEASE
     Dosage: 20 MG, UNK
  9. IBRANCE [Suspect]
     Active Substance: PALBOCICLIB
     Indication: BREAST CANCER FEMALE
     Dosage: 125 MG CAPSULES FOR 21 DAYS AND THEN 7 DAYS OFF
     Dates: start: 20160601
  10. IBRANCE [Suspect]
     Active Substance: PALBOCICLIB
     Indication: METASTASES TO BONE
     Dosage: 125 MG, DAILY
     Route: 048
     Dates: start: 20160601, end: 20160615
  11. IBRANCE [Suspect]
     Active Substance: PALBOCICLIB
     Dosage: 100 MG, 1X/DAY (ONCE DAILY)
     Route: 048
     Dates: start: 20160814
  12. RANEXA [Concomitant]
     Active Substance: RANOLAZINE
     Indication: ANGINA PECTORIS
     Dosage: 500 MG, 1X/DAY
     Route: 048
     Dates: start: 20120629
  13. RANEXA [Concomitant]
     Active Substance: RANOLAZINE
     Dosage: 500 MG, UNK
  14. FEMARA [Concomitant]
     Active Substance: LETROZOLE
     Indication: BREAST CANCER
     Dosage: 2.5 MG, DAILY
     Dates: start: 20160421
  15. FASLODEX [Concomitant]
     Active Substance: FULVESTRANT
     Indication: NEOPLASM MALIGNANT
     Dosage: UNK
     Dates: start: 2014, end: 201605
  16. ISOSORBIDE. [Concomitant]
     Active Substance: ISOSORBIDE
     Indication: CARDIAC DISORDER
     Dosage: 60 MG, 1X/DAY(EVERY MORNING)
  17. LETROZOLE. [Concomitant]
     Active Substance: LETROZOLE
     Dosage: 2.5 MG, UNK

REACTIONS (12)
  - Weight decreased [Not Recovered/Not Resolved]
  - Nausea [Recovered/Resolved]
  - Blood count abnormal [Unknown]
  - Neutropenia [Recovered/Resolved]
  - Oesophagitis [Not Recovered/Not Resolved]
  - Decreased appetite [Not Recovered/Not Resolved]
  - Abdominal discomfort [Unknown]
  - Cough [Not Recovered/Not Resolved]
  - Retching [Not Recovered/Not Resolved]
  - Asthenia [Recovered/Resolved]
  - Fatigue [Not Recovered/Not Resolved]
  - Epistaxis [Recovered/Resolved]

NARRATIVE: CASE EVENT DATE: 20160601
